FAERS Safety Report 22239071 (Version 1)
Quarter: 2023Q2

REPORT INFORMATION
  Report Type: Report from Study
  Country: US (occurrence: US)
  Receive Date: 20230421
  Receipt Date: 20230421
  Transmission Date: 20230721
  Serious: Yes (Other)
  Sender: FDA-Public Use
  Company Number: US-ARGENX-2023-ARGX-US000184

PATIENT

DRUGS (1)
  1. VYVGART [Suspect]
     Active Substance: EFGARTIGIMOD ALFA-FCAB
     Indication: Myasthenia gravis
     Dosage: UNK
     Route: 042
     Dates: start: 20221231, end: 20230128

REACTIONS (8)
  - Upper respiratory tract infection [Unknown]
  - Urinary tract infection [Unknown]
  - Diverticulitis [Not Recovered/Not Resolved]
  - Deafness [Unknown]
  - Product dose omission issue [Unknown]
  - Therapy cessation [Unknown]
  - Ear infection [Unknown]
  - Abscess [Unknown]

NARRATIVE: CASE EVENT DATE: 20230107
